FAERS Safety Report 8209921-5 (Version None)
Quarter: 2012Q1

REPORT INFORMATION
  Report Type: 
  Country: None (occurrence: None)
  Receive Date: 20120314
  Receipt Date: 20110803
  Transmission Date: 20120608
  Serious: No
  Sender: FDA-Public Use
  Company Number: US-ASTRAZENECA-2011SE46905

PATIENT
  Age: 48 Year
  Sex: Male

DRUGS (3)
  1. TOPROL-XL [Suspect]
     Route: 048
  2. TOPROL-XL [Suspect]
     Route: 048
  3. AMLODIPINE [Concomitant]
     Indication: VASCULAR COMPRESSION

REACTIONS (4)
  - INCORRECT DOSE ADMINISTERED [None]
  - DRUG DOSE OMISSION [None]
  - HYPERTENSION [None]
  - TREATMENT NONCOMPLIANCE [None]
